FAERS Safety Report 18451973 (Version 1)
Quarter: 2020Q4

REPORT INFORMATION
  Report Type: Spontaneous
  Country: US (occurrence: US)
  Receive Date: 20201102
  Receipt Date: 20201102
  Transmission Date: 20210114
  Serious: Yes (Hospitalization)
  Sender: FDA-Public Use
  Company Number: US-MYLANLABS-2020M1090483

PATIENT
  Age: 76 Year
  Sex: Female

DRUGS (3)
  1. RITUXIMAB. [Suspect]
     Active Substance: RITUXIMAB
     Indication: COOMBS NEGATIVE HAEMOLYTIC ANAEMIA
     Dosage: UNK UNK, TOTAL
     Route: 065
  2. PREDNISONE. [Suspect]
     Active Substance: PREDNISONE
     Dosage: 30 MILLIGRAM, QD SLOWLY TAPERED AT THE TIME OF PRESENTATION
     Route: 065
  3. PREDNISONE. [Suspect]
     Active Substance: PREDNISONE
     Indication: COOMBS NEGATIVE HAEMOLYTIC ANAEMIA
     Dosage: 60 MILLIGRAM, QD
     Route: 065

REACTIONS (4)
  - Pulmonary mucormycosis [Unknown]
  - Renal failure [Unknown]
  - Pneumothorax [Unknown]
  - Respiratory failure [Unknown]
